FAERS Safety Report 19055196 (Version 1)
Quarter: 2021Q1

REPORT INFORMATION
  Report Type: Spontaneous
  Country: US (occurrence: US)
  Receive Date: 20210324
  Receipt Date: 20210324
  Transmission Date: 20210420
  Serious: Yes (Other)
  Sender: FDA-Public Use
  Company Number: None

PATIENT
  Age: 5 Year
  Sex: Male

DRUGS (1)
  1. NORDITROPIN [Suspect]
     Active Substance: SOMATROPIN
     Indication: HYPOPITUITARISM
     Dosage: ?          OTHER FREQUENCY:EVERY OTHER NIGHT;?
     Route: 058
     Dates: start: 20200421

REACTIONS (2)
  - Pyrexia [None]
  - Gastroenteritis viral [None]

NARRATIVE: CASE EVENT DATE: 20210302
